FAERS Safety Report 21438816 (Version 2)
Quarter: 2023Q1

REPORT INFORMATION
  Report Type: Spontaneous
  Country: US (occurrence: US)
  Receive Date: 20221011
  Receipt Date: 20230203
  Transmission Date: 20230418
  Serious: No
  Sender: FDA-Public Use
  Company Number: US-AMGEN-USASP2022171309

PATIENT
  Age: 76 Year
  Sex: Male

DRUGS (4)
  1. REPATHA [Suspect]
     Active Substance: EVOLOCUMAB
     Indication: Product used for unknown indication
     Dosage: 140 MILLIGRAM, Q2WK
     Route: 065
     Dates: start: 202209
  2. REPATHA [Suspect]
     Active Substance: EVOLOCUMAB
     Dosage: 140 MILLIGRAM, Q2WK
     Route: 065
  3. ALFUZOSIN [Concomitant]
     Active Substance: ALFUZOSIN
     Indication: Renal disorder
     Dosage: 10 MILLIGRAM
  4. ASPIRIN [Concomitant]
     Active Substance: ASPIRIN
     Dosage: 81 MILLIGRAM

REACTIONS (3)
  - Product storage error [Unknown]
  - Circumstance or information capable of leading to medication error [Unknown]
  - Pain [Not Recovered/Not Resolved]

NARRATIVE: CASE EVENT DATE: 20220901
